FAERS Safety Report 4316195-4 (Version None)
Quarter: 2004Q1

REPORT INFORMATION
  Report Type: 
  Country: None (occurrence: None)
  Receive Date: 20040312
  Receipt Date: 20040302
  Transmission Date: 20041129
  Serious: Yes (Other)
  Sender: FDA-Public Use
  Company Number: CA-GLAXOSMITHKLINE-A0500909A

PATIENT
  Sex: Male

DRUGS (1)
  1. ROSIGLITAZONE MALEATE [Suspect]
     Indication: PSORIASIS
     Dosage: 2MG TWICE PER DAY
     Route: 048
     Dates: end: 20030923

REACTIONS (2)
  - ABDOMINAL DISTENSION [None]
  - HEPATIC NEOPLASM [None]
